FAERS Safety Report 10174114 (Version 1)
Quarter: 2014Q2

REPORT INFORMATION
  Report Type: Spontaneous
  Country: US (occurrence: US)
  Receive Date: 20140515
  Receipt Date: 20140515
  Transmission Date: 20141212
  Serious: Yes (Other)
  Sender: FDA-Public Use
  Company Number: US-BRISTOL-MYERS SQUIBB COMPANY-20713392

PATIENT
  Age: 79 Year
  Sex: Male
  Weight: 104 kg

DRUGS (15)
  1. YERVOY [Suspect]
     Indication: MALIGNANT MELANOMA
     Dates: start: 20140408
  2. ALLOPURINOL [Concomitant]
  3. ASPIRIN [Concomitant]
  4. LIPITOR [Concomitant]
  5. COREG [Concomitant]
  6. COLESTYRAMINE [Concomitant]
  7. CIPRO [Concomitant]
  8. DUONEB [Concomitant]
  9. MELATONIN [Concomitant]
  10. MORPHINE [Concomitant]
  11. ZOFRAN [Concomitant]
  12. PROTONIX [Concomitant]
  13. SENOKOT [Concomitant]
  14. ZOLOFT [Concomitant]
  15. HEPARIN SQ [Concomitant]

REACTIONS (1)
  - Stress cardiomyopathy [Not Recovered/Not Resolved]
